FAERS Safety Report 11458815 (Version 3)
Quarter: 2015Q4

REPORT INFORMATION
  Report Type: Report from Study
  Country: US (occurrence: US)
  Receive Date: 20150904
  Receipt Date: 20151029
  Transmission Date: 20160304
  Serious: No
  Sender: FDA-Public Use
  Company Number: PHEH2015US016545

PATIENT
  Sex: Female

DRUGS (4)
  1. EXTAVIA [Suspect]
     Active Substance: INTERFERON BETA-1B
     Indication: MULTIPLE SCLEROSIS
     Dosage: 0.0625 MG (0.25 ML), QOD (WEEK 1 -2)
     Route: 058
     Dates: start: 20150812
  2. EXTAVIA [Suspect]
     Active Substance: INTERFERON BETA-1B
     Dosage: 0.125 MG (0.5 ML), QOD (WEEK 3 -4)
     Route: 058
  3. EXTAVIA [Suspect]
     Active Substance: INTERFERON BETA-1B
     Dosage: 0.25 MG (1 ML), QOD (WEEK 7+)
     Route: 058
  4. EXTAVIA [Suspect]
     Active Substance: INTERFERON BETA-1B
     Dosage: 0.1875 MG (0.75 ML), QOD (WEEK 5 -6)
     Route: 058

REACTIONS (8)
  - Injection site erythema [Unknown]
  - Injection site haemorrhage [Unknown]
  - Insomnia [Unknown]
  - Syncope [Unknown]
  - Injection site pain [Unknown]
  - Depression [Unknown]
  - Incorrect route of drug administration [Unknown]
  - Dizziness [Unknown]
